FAERS Safety Report 10172650 (Version 2)
Quarter: 2014Q2

REPORT INFORMATION
  Report Type: Report from Study
  Country: US (occurrence: US)
  Receive Date: 20140515
  Receipt Date: 20140515
  Transmission Date: 20141212
  Serious: Yes (Other)
  Sender: FDA-Public Use
  Company Number: US-BRISTOL-MYERS SQUIBB COMPANY-20611794

PATIENT
  Age: 44 Year
  Sex: Female
  Weight: 82.54 kg

DRUGS (6)
  1. BYDUREON [Suspect]
     Indication: TYPE 2 DIABETES MELLITUS
     Route: 058
     Dates: start: 20131018, end: 20140328
  2. BYETTA [Suspect]
     Indication: TYPE 2 DIABETES MELLITUS
     Dosage: 1APR13-28APR13: 5MCG?29APR13-14AUG13: 10MCG
     Route: 058
     Dates: start: 20130401, end: 20130814
  3. METFORMIN HCL [Suspect]
     Indication: TYPE 2 DIABETES MELLITUS
     Route: 048
     Dates: start: 200606
  4. FERROUS SULFATE [Suspect]
     Indication: ANAEMIA
     Route: 048
     Dates: start: 20130612
  5. LANTUS [Suspect]
     Indication: TYPE 2 DIABETES MELLITUS
     Dosage: 1DF: 15 UNITS NOS: 5FEB14-18MAR14?19MAR14:40 UNITS NOS
     Route: 058
     Dates: start: 20140205
  6. GLIMEPIRIDE [Suspect]
     Indication: TYPE 2 DIABETES MELLITUS
     Route: 058
     Dates: start: 20140221

REACTIONS (2)
  - Abortion spontaneous [Unknown]
  - Pregnancy [Recovered/Resolved]
